FAERS Safety Report 7636231-7 (Version None)
Quarter: 2011Q3

REPORT INFORMATION
  Report Type: 
  Country: None (occurrence: None)
  Receive Date: 20110722
  Receipt Date: 20110722
  Transmission Date: 20111222
  Serious: Yes (Other)
  Sender: FDA-Public Use
  Company Number: None

PATIENT

DRUGS (1)
  1. LAMOTRIGINE CHEWABLE [Suspect]
     Dosage: CHEW 2  LAMOTRIGINE 25MG DAILY PO
     Route: 048
     Dates: end: 20090303

REACTIONS (3)
  - PRODUCT SUBSTITUTION ISSUE [None]
  - DRUG LEVEL FLUCTUATING [None]
  - CONVULSION [None]
